FAERS Safety Report 9690385 (Version 1)
Quarter: 2013Q4

REPORT INFORMATION
  Report Type: Spontaneous
  Country: CH (occurrence: None)
  Receive Date: 20131113
  Receipt Date: 20131113
  Transmission Date: 20140711
  Serious: Yes (Hospitalization)
  Sender: FDA-Public Use
  Company Number: VAL_02814_2013

PATIENT
  Age: 77 Year
  Sex: Male
  Weight: 63 kg

DRUGS (12)
  1. METOPROLOL [Suspect]
     Indication: MYOCARDIAL ISCHAEMIA
     Route: 048
     Dates: end: 20130906
  2. DIGOXIN [Suspect]
     Indication: MYOCARDIAL ISCHAEMIA
     Route: 048
     Dates: end: 20130906
  3. AMIODARONE [Suspect]
     Indication: MYOCARDIAL ISCHAEMIA
     Route: 048
     Dates: start: 20130706
  4. ALDACTONE [Suspect]
     Indication: MYOCARDIAL ISCHAEMIA
     Route: 048
  5. CONVERSUM N [Suspect]
     Indication: MYOCARDIAL ISCHAEMIA
     Route: 048
  6. TOREM [Suspect]
     Indication: MYOCARDIAL ISCHAEMIA
     Route: 048
  7. DORMICUM [Suspect]
     Indication: INSOMNIA
     Route: 048
  8. ASPIRIN CARDIO [Concomitant]
  9. ATORVASTATIN [Concomitant]
  10. ESOMEPRAZOLE [Concomitant]
  11. SPIRIVA [Concomitant]
  12. SEREVENT [Concomitant]

REACTIONS (12)
  - Accidental overdose [None]
  - Drug interaction [None]
  - General physical health deterioration [None]
  - Nausea [None]
  - Feeding disorder [None]
  - Fall [None]
  - Cardioactive drug level increased [None]
  - Orthostatic hypotension [None]
  - Dehydration [None]
  - Renal failure acute [None]
  - Hyperkalaemia [None]
  - Hypotension [None]
